FAERS Safety Report 24167747 (Version 1)
Quarter: 2024Q3

REPORT INFORMATION
  Report Type: Spontaneous
  Country: LU (occurrence: LU)
  Receive Date: 20240802
  Receipt Date: 20240802
  Transmission Date: 20241017
  Serious: Yes (Hospitalization)
  Sender: BAXTER
  Company Number: None

PATIENT
  Age: 53 Year
  Sex: Female
  Weight: 71 kg

DRUGS (6)
  1. CYCLOPHOSPHAMIDE [Suspect]
     Active Substance: CYCLOPHOSPHAMIDE
     Indication: Breast cancer
     Dosage: 1054MG, 1 CYCLICAL, 2ND COURSE OF CHEMOTHERAPY
     Route: 042
     Dates: start: 20240717, end: 20240717
  2. CYCLOPHOSPHAMIDE [Suspect]
     Active Substance: CYCLOPHOSPHAMIDE
     Indication: Breast cancer
     Dosage: UNK, BRAND NAME: ENDOXAN
     Route: 065
     Dates: start: 20240703, end: 20240703
  3. EPIRUBICIN [Concomitant]
     Active Substance: EPIRUBICIN
     Indication: Breast cancer
     Dosage: 1 CYCLICAL
     Route: 042
     Dates: start: 20240717, end: 20240717
  4. ONDANSETRON [Concomitant]
     Active Substance: ONDANSETRON
     Indication: Chemotherapy side effect prophylaxis
     Dosage: 8 MG, 1 IN TOTAL
     Route: 042
     Dates: start: 20240717, end: 20240717
  5. DEXAMETHASONE [Concomitant]
     Active Substance: DEXAMETHASONE
     Indication: Chemotherapy side effect prophylaxis
     Dosage: 8MG, 1 IN TOTAL
     Route: 042
     Dates: start: 20240717, end: 20240717
  6. EMEND [Concomitant]
     Active Substance: APREPITANT
     Indication: Chemotherapy side effect prophylaxis
     Dosage: 125 MG, 1 IN TOTAL
     Route: 048
     Dates: start: 20240717, end: 20240717

REACTIONS (1)
  - Infusion related reaction [Recovering/Resolving]

NARRATIVE: CASE EVENT DATE: 20240717
